FAERS Safety Report 21039968 (Version 1)
Quarter: 2022Q3

REPORT INFORMATION
  Report Type: Spontaneous
  Country: JP (occurrence: JP)
  Receive Date: 20220704
  Receipt Date: 20220704
  Transmission Date: 20221027
  Serious: Yes (Other)
  Sender: FDA-Public Use
  Company Number: JP-TAKEDA-2022TJP053807

PATIENT

DRUGS (1)
  1. ZEJULA [Suspect]
     Active Substance: NIRAPARIB
     Indication: Ovarian cancer
     Dosage: 200 MILLIGRAM, QD
     Route: 048
     Dates: start: 20210823, end: 20220516

REACTIONS (3)
  - Ovarian cancer recurrent [Unknown]
  - Anaemia [Recovered/Resolved]
  - Tumour marker increased [Unknown]

NARRATIVE: CASE EVENT DATE: 20220516
